FAERS Safety Report 17793098 (Version 2)
Quarter: 2021Q1

REPORT INFORMATION
  Report Type: Spontaneous
  Country: GB (occurrence: GB)
  Receive Date: 20200515
  Receipt Date: 20210308
  Transmission Date: 20210419
  Serious: Yes (Other)
  Sender: FDA-Public Use
  Company Number: GB-SA-2020SA126124

PATIENT
  Age: 43 Year
  Sex: Female
  Weight: 101.6 kg

DRUGS (2)
  1. PREDNISOLONE. [Suspect]
     Active Substance: PREDNISOLONE
  2. DUPIXENT [Suspect]
     Active Substance: DUPILUMAB
     Indication: DERMATITIS ATOPIC
     Dosage: 1 DF, QOW
     Route: 051
     Dates: start: 20200123

REACTIONS (8)
  - Erythema [Not Recovered/Not Resolved]
  - Herpes zoster [Recovering/Resolving]
  - Pain of skin [Unknown]
  - Oral herpes [Recovered/Resolved]
  - Incorrect route of product administration [Unknown]
  - Steroid withdrawal syndrome [Unknown]
  - Abortion spontaneous [Recovered/Resolved]
  - Maternal exposure during pregnancy [Unknown]

NARRATIVE: CASE EVENT DATE: 20200123
